FAERS Safety Report 17363358 (Version 3)
Quarter: 2020Q1

REPORT INFORMATION
  Report Type: Spontaneous
  Country: GB (occurrence: GB)
  Receive Date: 20200203
  Receipt Date: 20200226
  Transmission Date: 20200409
  Serious: Yes (Disabling, Other)
  Sender: FDA-Public Use
  Company Number: GB-ALLERGAN-2003087US

PATIENT
  Sex: Female

DRUGS (1)
  1. EXOCIN [Suspect]
     Active Substance: OFLOXACIN
     Indication: PRODUCT USED FOR UNKNOWN INDICATION
     Dosage: UNK
     Route: 047
     Dates: start: 20170607, end: 20170612

REACTIONS (14)
  - Shock [Unknown]
  - Memory impairment [Unknown]
  - Social avoidant behaviour [Unknown]
  - Confusional state [Unknown]
  - Tremor [Unknown]
  - Eyelid disorder [Not Recovered/Not Resolved]
  - Delirium [Unknown]
  - Disability [Unknown]
  - Aphasia [Unknown]
  - Hyperventilation [Unknown]
  - Feeling abnormal [Unknown]
  - Psychiatric symptom [Unknown]
  - Dry eye [Not Recovered/Not Resolved]
  - Fear [Unknown]

NARRATIVE: CASE EVENT DATE: 20170612
